FAERS Safety Report 20689835 (Version 7)
Quarter: 2025Q4

REPORT INFORMATION
  Report Type: Report from Study
  Country: US (occurrence: US)
  Receive Date: 20220408
  Receipt Date: 20251030
  Transmission Date: 20260117
  Serious: Yes (Death, Hospitalization, Other)
  Sender: TAKEDA
  Company Number: US-TAKEDA-US202031047

PATIENT
  Age: 64 Year
  Sex: Female

DRUGS (4)
  1. TEDUGLUTIDE [Suspect]
     Active Substance: TEDUGLUTIDE
     Indication: Short-bowel syndrome
     Dosage: 2.2 MILLIGRAM, QD
     Dates: start: 20130313
  2. TEDUGLUTIDE [Suspect]
     Active Substance: TEDUGLUTIDE
     Dosage: 0.23 DOSAGE FORM, QD
     Dates: start: 20150611
  3. TEDUGLUTIDE [Suspect]
     Active Substance: TEDUGLUTIDE
     Dosage: 2.2 MILLIGRAM, QD
     Dates: end: 20240419
  4. TEDUGLUTIDE [Suspect]
     Active Substance: TEDUGLUTIDE
     Dosage: 2.2 MILLIGRAM, QD
     Dates: start: 20170711

REACTIONS (7)
  - Multiple organ dysfunction syndrome [Fatal]
  - Renal failure [Not Recovered/Not Resolved]
  - Cardiac failure [Recovered/Resolved]
  - Cough [Recovered/Resolved]
  - Dyspnoea [Recovered/Resolved]
  - Dehydration [Recovered/Resolved]
  - Device alarm issue [Recovered/Resolved]

NARRATIVE: CASE EVENT DATE: 20220323
